FAERS Safety Report 5808207-3 (Version None)
Quarter: 2008Q3

REPORT INFORMATION
  Report Type: 
  Country: None (occurrence: None)
  Receive Date: 20080709
  Receipt Date: 20080701
  Transmission Date: 20090109
  Serious: Yes (Other)
  Sender: FDA-Public Use
  Company Number: CHPA2008US10771

PATIENT
  Age: 56 Year
  Sex: Male

DRUGS (3)
  1. EXCEDRIN (MIGRAINE) [Suspect]
     Indication: MIGRAINE
     Dosage: 2 DF, QD, ORAL
     Route: 048
     Dates: start: 19850101
  2. ALL OTHER THERAPEUTIC PRODUCTS (NO INGREDIENTS/SUBSTANCES) [Concomitant]
  3. RELPAX [Concomitant]

REACTIONS (6)
  - ABDOMINAL PAIN [None]
  - CHEST PAIN [None]
  - GASTROINTESTINAL DISORDER [None]
  - INTESTINAL POLYP [None]
  - PAIN [None]
  - STOMACH DISCOMFORT [None]
